FAERS Safety Report 4288073-0 (Version None)
Quarter: 2004Q1

REPORT INFORMATION
  Report Type: 
  Country: None (occurrence: None)
  Receive Date: 20040202
  Receipt Date: 20030103
  Transmission Date: 20041129
  Serious: Yes (Hospitalization)
  Sender: FDA-Public Use
  Company Number: 135850USA

PATIENT
  Age: 48 Year
  Sex: Female

DRUGS (2)
  1. COPAXONE [Suspect]
     Indication: MULTIPLE SCLEROSIS
     Dosage: 20 MILLIGRAM QD SUBCUTANEOUS
     Route: 058
     Dates: start: 20020923, end: 20020929
  2. TRILEPTAL [Concomitant]

REACTIONS (14)
  - AKINESIA [None]
  - ASTHENIA [None]
  - CHEST PAIN [None]
  - CYSTITIS [None]
  - FATIGUE [None]
  - FEELING HOT [None]
  - HEADACHE [None]
  - MUSCLE CRAMP [None]
  - MUSCLE SPASMS [None]
  - NAUSEA [None]
  - PAIN [None]
  - PARALYSIS [None]
  - TENDERNESS [None]
  - VOMITING [None]
